FAERS Safety Report 8906836 (Version 1)
Quarter: 2012Q4

REPORT INFORMATION
  Report Type: 
  Country: US (occurrence: US)
  Receive Date: 20121113
  Receipt Date: 20121113
  Transmission Date: 20130627
  Serious: No
  Sender: FDA-Public Use
  Company Number: US-AMGEN-USASP2012010895

PATIENT
  Age: 30 Year
  Sex: Female

DRUGS (1)
  1. ENBREL [Suspect]
     Indication: RHEUMATOID ARTHRITIS
     Dosage: 50 mg, qwk
     Dates: start: 20090826, end: 20101001

REACTIONS (4)
  - Fear [Recovered/Resolved]
  - Panic attack [Recovered/Resolved]
  - Staphylococcal infection [Recovered/Resolved]
  - Hypersensitivity [Recovered/Resolved]
